FAERS Safety Report 4876778-X (Version None)
Quarter: 2005Q4

REPORT INFORMATION
  Report Type: 
  Country: None (occurrence: None)
  Receive Date: 20051206
  Receipt Date: 20050802
  Transmission Date: 20060501
  Serious: No
  Sender: FDA-Public Use
  Company Number: USA050495846

PATIENT
  Age: 74 Year
  Sex: Female

DRUGS (6)
  1. CYMBALTA [Suspect]
     Indication: POST HERPETIC NEURALGIA
     Dosage: 30 MG DAY
     Dates: start: 20050401, end: 20050428
  2. TENORMIN [Concomitant]
  3. ACETAMINOPHEN AND HYDROCODONE BITARTRATE [Concomitant]
  4. OXYCONTIN [Concomitant]
  5. THYROID TAB [Concomitant]
  6. TRIAMTERENE AND HYDROCHLOROTHIAZIDE [Concomitant]

REACTIONS (4)
  - COUGH [None]
  - DYSPNOEA [None]
  - FATIGUE [None]
  - RASH [None]
